FAERS Safety Report 18759500 (Version 1)
Quarter: 2021Q1

REPORT INFORMATION
  Report Type: Spontaneous
  Country: US (occurrence: US)
  Receive Date: 20210120
  Receipt Date: 20210120
  Transmission Date: 20210419
  Serious: Yes (Hospitalization, Other)
  Sender: FDA-Public Use
  Company Number: US-AUROBINDO-AUR-APL-2021-001925

PATIENT
  Age: 28 Year
  Sex: Female

DRUGS (10)
  1. ONDANSETRON 4MG [Suspect]
     Active Substance: ONDANSETRON
     Dosage: 4 DOSAGE FORM, TOTAL (REQUIRING ONLY TWO DOSES OF 4 MG ODSN FOR THE REMAINING SIX DAYS)
     Route: 065
  2. ONDANSETRON 4MG [Suspect]
     Active Substance: ONDANSETRON
     Dosage: UNK (IT IS UNCLEAR HOW FREQUENTLY SHE SELF?ADMINISTERED ODSN)
     Route: 065
  3. SERTRALINE [Concomitant]
     Active Substance: SERTRALINE HYDROCHLORIDE
     Indication: MAJOR DEPRESSION
     Dosage: UNK (TITRATED UP)
     Route: 065
  4. ONDANSETRON 4MG [Suspect]
     Active Substance: ONDANSETRON
     Indication: HYPEREMESIS GRAVIDARUM
     Dosage: UNK AS NECESSARY (AS?NEEDED BASIS (PRN). THE FIRST ADMINISTRATION OF ODSN WAS ONE DAY)
     Route: 065
  5. OLANZAPINE. [Concomitant]
     Active Substance: OLANZAPINE
     Indication: PSYCHOTIC SYMPTOM
     Dosage: 20 MILLIGRAM, ONCE A DAY
     Route: 065
  6. FAMOTIDINE. [Concomitant]
     Active Substance: FAMOTIDINE
     Indication: HYPEREMESIS GRAVIDARUM
     Dosage: 20 MILLIGRAM, TWO TIMES A DAY
     Route: 042
  7. DOXYLAMINE SUCCINATE. [Concomitant]
     Active Substance: DOXYLAMINE SUCCINATE
     Indication: HYPEREMESIS GRAVIDARUM
     Dosage: 12.5 MILLIGRAM, FOUR TIMES/DAY
     Route: 065
  8. PYRIDOXINE [Concomitant]
     Active Substance: PYRIDOXINE
     Indication: HYPEREMESIS GRAVIDARUM
     Dosage: 25 MILLIGRAM, FOUR TIMES/DAY
     Route: 065
  9. OLANZAPINE. [Concomitant]
     Active Substance: OLANZAPINE
     Indication: MAJOR DEPRESSION
     Dosage: UNK (TITRATED UP)
     Route: 065
  10. SERTRALINE [Concomitant]
     Active Substance: SERTRALINE HYDROCHLORIDE
     Indication: PSYCHOTIC SYMPTOM
     Dosage: 50 MILLIGRAM, ONCE A DAY
     Route: 065

REACTIONS (3)
  - Maternal exposure during pregnancy [Recovered/Resolved]
  - Drug-induced liver injury [Recovering/Resolving]
  - Hypertransaminasaemia [Recovering/Resolving]
